FAERS Safety Report 4844993-7 (Version None)
Quarter: 2005Q4

REPORT INFORMATION
  Report Type: 
  Country: None (occurrence: None)
  Receive Date: 20051205
  Receipt Date: 20051004
  Transmission Date: 20060501
  Serious: Yes (Hospitalization, Other)
  Sender: FDA-Public Use
  Company Number: US-MERCK-0510USA02365

PATIENT
  Sex: Female
  Weight: 80 kg

DRUGS (6)
  1. VIOXX [Suspect]
     Indication: BACK PAIN
     Route: 048
     Dates: start: 20000801, end: 20011001
  2. VIOXX [Suspect]
     Indication: ARTHRITIS
     Route: 048
     Dates: start: 20000801, end: 20011001
  3. ZOLOFT [Concomitant]
     Route: 065
  4. XANAX [Concomitant]
     Route: 065
  5. PREMARIN [Concomitant]
     Route: 065
  6. LAMICTAL [Concomitant]
     Route: 065

REACTIONS (7)
  - BACK PAIN [None]
  - CEREBROVASCULAR ACCIDENT [None]
  - CHEST PAIN [None]
  - DEPRESSION [None]
  - DRUG DEPENDENCE [None]
  - NEOPLASM [None]
  - TRANSIENT ISCHAEMIC ATTACK [None]
